FAERS Safety Report 20754648 (Version 1)
Quarter: 2022Q2

REPORT INFORMATION
  Report Type: Spontaneous
  Country: US (occurrence: None)
  Receive Date: 20220426
  Receipt Date: 20220426
  Transmission Date: 20220720
  Serious: No
  Sender: FDA-Public Use
  Company Number: US-ROCHE-2964398

PATIENT
  Sex: Female

DRUGS (1)
  1. ESBRIET [Suspect]
     Active Substance: PIRFENIDONE
     Indication: Pulmonary fibrosis
     Dosage: 1 CAPSULE TID FOR 7 DAYS, THEN 2 CAPSULES TID FOR 7 DAYS
     Route: 048

REACTIONS (3)
  - Drug intolerance [Unknown]
  - Constipation [Unknown]
  - Feeding disorder [Unknown]
